FAERS Safety Report 7564035-2 (Version None)
Quarter: 2011Q2

REPORT INFORMATION
  Report Type: 
  Country: None (occurrence: None)
  Receive Date: 20110622
  Receipt Date: 20110421
  Transmission Date: 20111010
  Serious: Yes (Hospitalization)
  Sender: FDA-Public Use
  Company Number: FR-GENENTECH-320448

PATIENT
  Sex: Male
  Weight: 23.8 kg

DRUGS (1)
  1. SOMATROPIN RDNA [Suspect]
     Indication: GROWTH HORMONE DEFICIENCY
     Dosage: 0.04 MG/KG, QD
     Route: 058
     Dates: start: 20061108

REACTIONS (2)
  - HYPERTROPHIC SCAR [None]
  - CRYPTORCHISM [None]
